FAERS Safety Report 18134351 (Version 1)
Quarter: 2020Q3

REPORT INFORMATION
  Report Type: Spontaneous
  Country: US (occurrence: US)
  Receive Date: 20200810
  Receipt Date: 20200810
  Transmission Date: 20201103
  Serious: Yes (Hospitalization)
  Sender: FDA-Public Use
  Company Number: None

PATIENT
  Age: 78 Year
  Sex: Male
  Weight: 123.83 kg

DRUGS (1)
  1. SULFAMETHOXAZOLE/TRIMETHOPRIM(SULFAMETHOXZALE 800MG/TRIMETHOPRIM 160MG [Suspect]
     Active Substance: SULFAMETHOXAZOLE\TRIMETHOPRIM
     Indication: PROVIDENCIA URINARY TRACT INFECTION
     Dosage: ?          OTHER DOSE:800/160 MG;?
     Route: 048
     Dates: start: 20200606, end: 20200610

REACTIONS (9)
  - Lip swelling [None]
  - Hypotension [None]
  - Rash pruritic [None]
  - Rash [None]
  - Tongue eruption [None]
  - Hypersensitivity [None]
  - Adrenal insufficiency [None]
  - Swollen tongue [None]
  - Angioedema [None]

NARRATIVE: CASE EVENT DATE: 20200610
